FAERS Safety Report 19146587 (Version 6)
Quarter: 2021Q2

REPORT INFORMATION
  Report Type: Report from Study
  Country: FR (occurrence: FR)
  Receive Date: 20210416
  Receipt Date: 20210528
  Transmission Date: 20210717
  Serious: Yes (Hospitalization)
  Sender: FDA-Public Use
  Company Number: FR-EISAI MEDICAL RESEARCH-EC-2021-091167

PATIENT
  Age: 58 Year
  Sex: Male
  Weight: 63.6 kg

DRUGS (11)
  1. PEMBROLIZUMAB. [Suspect]
     Active Substance: PEMBROLIZUMAB
     Route: 041
     Dates: start: 20210311, end: 20210311
  2. INEXIUM [Concomitant]
     Active Substance: ESOMEPRAZOLE
     Dates: start: 202010
  3. LEVOTHYROX [Concomitant]
     Active Substance: LEVOTHYROXINE
     Dates: start: 20210104
  4. PEMBROLIZUMAB. [Suspect]
     Active Substance: PEMBROLIZUMAB
     Indication: GASTRIC CANCER
     Route: 041
     Dates: start: 20201123, end: 20210218
  5. LENVATINIB [Suspect]
     Active Substance: LENVATINIB
     Route: 048
     Dates: start: 20210311, end: 20210403
  6. VENTOLINE [Suspect]
     Active Substance: ALBUTEROL
     Indication: PRODUCT USED FOR UNKNOWN INDICATION
     Dosage: UNKNOWN
     Route: 065
  7. LENVATINIB [Suspect]
     Active Substance: LENVATINIB
     Indication: GASTRIC CANCER
     Dosage: STARTING DOSE AT 20 MG, FLUCTUATED DOSAGE
     Route: 048
     Dates: start: 20201123, end: 20210310
  8. DUROGESIC [Concomitant]
     Active Substance: FENTANYL
     Dates: start: 20210226
  9. LENVATINIB [Suspect]
     Active Substance: LENVATINIB
     Route: 048
     Dates: start: 20210407
  10. ABSTRAL [Concomitant]
     Active Substance: FENTANYL CITRATE
     Dates: start: 20210311
  11. BISOPROLOL [Concomitant]
     Active Substance: BISOPROLOL
     Dates: start: 202010

REACTIONS (2)
  - Acute respiratory distress syndrome [Recovered/Resolved with Sequelae]
  - Disease progression [Not Recovered/Not Resolved]

NARRATIVE: CASE EVENT DATE: 20210403
